FAERS Safety Report 8502411-1 (Version None)
Quarter: 2012Q3

REPORT INFORMATION
  Report Type: 
  Country: None (occurrence: None)
  Receive Date: 20120711
  Receipt Date: 20120709
  Transmission Date: 20120928
  Serious: Yes (Other)
  Sender: FDA-Public Use
  Company Number: PHHY2012PK058685

PATIENT
  Age: 69 Year
  Sex: Female
  Weight: 70 kg

DRUGS (2)
  1. ZOLEDRONOC ACID [Suspect]
     Indication: OSTEOPOROSIS
     Dosage: ONCE A YEAR
     Route: 042
     Dates: start: 20110728
  2. CALCIUM [Concomitant]
     Indication: OSTEOPOROSIS

REACTIONS (4)
  - ASTHENIA [None]
  - PAIN [None]
  - PYREXIA [None]
  - FOOT FRACTURE [None]
